FAERS Safety Report 16302772 (Version 1)
Quarter: 2019Q2

REPORT INFORMATION
  Report Type: Other
  Country: FR (occurrence: FR)
  Receive Date: 20190513
  Receipt Date: 20190513
  Transmission Date: 20190711
  Serious: Yes (Hospitalization)
  Sender: FDA-Public Use
  Company Number: FR-CELLTRION INC.-2019FR021041

PATIENT

DRUGS (9)
  1. ZESTORETIC [Concomitant]
     Active Substance: HYDROCHLOROTHIAZIDE\LISINOPRIL
     Indication: HYPERTENSION
     Dosage: (20 MG/12.5 MG) 1 DF, DAILY
     Route: 048
  2. CETIRIZINE [Concomitant]
     Active Substance: CETIRIZINE HYDROCHLORIDE
     Indication: PREMEDICATION
     Dosage: UNK
     Route: 048
     Dates: start: 20190410, end: 20190410
  3. TRUXIMA [Suspect]
     Active Substance: RITUXIMAB-ABBS
     Indication: RHEUMATOID ARTHRITIS
     Dosage: 500 MG
     Route: 042
     Dates: start: 20190410, end: 20190410
  4. LIPANOR [Concomitant]
     Active Substance: CIPROFIBRATE
     Indication: DYSLIPIDAEMIA
     Dosage: 300 MG, 1/WEEK
     Route: 048
  5. PANTOPRAZOLE [Concomitant]
     Active Substance: PANTOPRAZOLE
     Indication: PRODUCT USED FOR UNKNOWN INDICATION
     Dosage: 20 MG
     Route: 048
  6. PARACETAMOL [Concomitant]
     Active Substance: ACETAMINOPHEN
     Indication: PREMEDICATION
     Dosage: 1 G
     Route: 048
     Dates: start: 20190410, end: 20190410
  7. METHYLPREDNISOLONE. [Concomitant]
     Active Substance: METHYLPREDNISOLONE
     Indication: PREMEDICATION
     Dosage: 100 MG
     Route: 042
     Dates: start: 20190410, end: 20190410
  8. DOLIPRANE [Concomitant]
     Active Substance: ACETAMINOPHEN
     Indication: GAIT DISTURBANCE
     Dosage: UNK
     Route: 048
  9. GANFORT [Concomitant]
     Active Substance: BIMATOPROST\TIMOLOL
     Indication: GLAUCOMA
     Dosage: UNK
     Route: 047

REACTIONS (3)
  - Chills [Recovered/Resolved]
  - Blood pressure systolic increased [Recovered/Resolved]
  - Pyrexia [Recovered/Resolved]

NARRATIVE: CASE EVENT DATE: 20190410
